FAERS Safety Report 4822807-9 (Version None)
Quarter: 2005Q4

REPORT INFORMATION
  Report Type: 
  Country: None (occurrence: None)
  Receive Date: 20051108
  Receipt Date: 20051028
  Transmission Date: 20060501
  Serious: Yes (Death)
  Sender: FDA-Public Use
  Company Number: JP-ROCHE-423055

PATIENT
  Age: 52 Year
  Sex: Female

DRUGS (3)
  1. CAPECITABINE [Suspect]
     Route: 048
     Dates: start: 20050307, end: 20050313
  2. CAPECITABINE [Suspect]
     Dosage: LOWERED DOSAGE
     Route: 048
     Dates: start: 20050314, end: 20050318
  3. ZOLPIDEM TARTRATE [Concomitant]
     Route: 048
     Dates: start: 20050314, end: 20050322

REACTIONS (4)
  - DIARRHOEA [None]
  - NAUSEA [None]
  - PALMAR-PLANTAR ERYTHRODYSAESTHESIA SYNDROME [None]
  - STOMATITIS [None]
